FAERS Safety Report 7232732-4 (Version None)
Quarter: 2011Q1

REPORT INFORMATION
  Report Type: 
  Country: None (occurrence: None)
  Receive Date: 20110119
  Receipt Date: 20110110
  Transmission Date: 20110831
  Serious: Yes (Other)
  Sender: FDA-Public Use
  Company Number: AU-PFIZER INC-2011007567

PATIENT
  Age: 44 Year
  Sex: Female
  Weight: 53.061 kg

DRUGS (8)
  1. EPIRUBICIN HYDROCHLORIDE [Suspect]
     Dosage: UNK
  2. IDARUBICIN HCL [Suspect]
     Dosage: 13 MG, UNK
     Route: 042
     Dates: start: 20070815, end: 20071006
  3. ETOPOPHOS PRESERVATIVE FREE [Suspect]
     Dosage: 110 MG, UNK
     Route: 042
     Dates: start: 20070815, end: 20071010
  4. PANITUMUMAB [Concomitant]
     Dosage: UNK
  5. IRINOTECAN HCL [Suspect]
     Dosage: UNK
  6. CYTARABINE [Suspect]
     Dosage: 4.4 G, UNK
     Route: 042
     Dates: start: 20070815
  7. NEULASTA [Suspect]
     Dosage: 6 MG, UNK
     Route: 058
     Dates: start: 20070822
  8. NEUPOGEN [Concomitant]
     Dosage: UNK

REACTIONS (2)
  - DRUG INEFFECTIVE [None]
  - FEBRILE NEUTROPENIA [None]
